FAERS Safety Report 5300951-X (Version None)
Quarter: 2007Q2

REPORT INFORMATION
  Report Type: 
  Country: None (occurrence: None)
  Receive Date: 20070411
  Receipt Date: 20070405
  Transmission Date: 20071010
  Serious: Yes (Death, Other)
  Sender: FDA-Public Use
  Company Number: 163-20785-07040344

PATIENT
  Age: 7 Year
  Sex: Female

DRUGS (1)
  1. THALOMID [Suspect]
     Indication: RENAL CELL CARCINOMA STAGE UNSPECIFIED
     Dosage: 50 MG, 1 IN 1 D, ORAL
     Route: 048
     Dates: start: 20061218

REACTIONS (2)
  - METASTASES TO LIVER [None]
  - PULMONARY HYPERTENSION [None]
